FAERS Safety Report 8183784-9 (Version None)
Quarter: 2012Q1

REPORT INFORMATION
  Report Type: 
  Country: None (occurrence: None)
  Receive Date: 20120305
  Receipt Date: 20120301
  Transmission Date: 20120608
  Serious: Yes (Death, Hospitalization, Other)
  Sender: FDA-Public Use
  Company Number: PHHY2012AR018593

PATIENT
  Sex: Female

DRUGS (1)
  1. EXFORGE [Suspect]
     Indication: HYPERTENSION
     Dosage: UNK

REACTIONS (6)
  - URINARY TRACT INFECTION [None]
  - SWELLING [None]
  - HYPERBILIRUBINAEMIA [None]
  - HEPATIC NEOPLASM MALIGNANT [None]
  - BLOOD GLUCOSE ABNORMAL [None]
  - HEPATIC CYST [None]
